FAERS Safety Report 20802965 (Version 2)
Quarter: 2022Q2

REPORT INFORMATION
  Report Type: Spontaneous
  Country: US (occurrence: US)
  Receive Date: 20220509
  Receipt Date: 20220623
  Transmission Date: 20220721
  Serious: No
  Sender: FDA-Public Use
  Company Number: US-BAUSCH-BL-2022-010786

PATIENT
  Age: 64 Year
  Sex: Female

DRUGS (1)
  1. ATIVAN [Suspect]
     Active Substance: LORAZEPAM
     Indication: Product used for unknown indication
     Route: 048

REACTIONS (4)
  - Therapeutic product effect decreased [Unknown]
  - Wrong technique in product usage process [Unknown]
  - Product physical consistency issue [Unknown]
  - Product quality issue [Unknown]
